FAERS Safety Report 22200437 (Version 2)
Quarter: 2024Q1

REPORT INFORMATION
  Report Type: Spontaneous
  Country: None (occurrence: US)
  Receive Date: 20230412
  Receipt Date: 20240116
  Transmission Date: 20240410
  Serious: Yes (Life-Threatening, Hospitalization)
  Sender: FDA-Public Use
  Company Number: US-Jiangsu Hengrui Medicine Co., Ltd.-2140185

PATIENT
  Age: 58 Year
  Sex: Female

DRUGS (6)
  1. DOCETAXEL [Suspect]
     Active Substance: DOCETAXEL\DOCETAXEL ANHYDROUS
     Indication: Invasive ductal breast carcinoma
  2. CYCLOPHOSPHAMIDE [Suspect]
     Active Substance: CYCLOPHOSPHAMIDE
  3. PEGFILGRASTIM [Suspect]
     Active Substance: PEGFILGRASTIM
  4. PALONOSETRON. [Suspect]
     Active Substance: PALONOSETRON HYDROCHLORIDE
  5. FAMOTIDINE [Suspect]
     Active Substance: FAMOTIDINE
  6. DEXAMETHASONE [Suspect]
     Active Substance: DEXAMETHASONE

REACTIONS (4)
  - Status epilepticus [Recovered/Resolved]
  - Hyponatraemia [Recovered/Resolved]
  - Abdominal discomfort [Unknown]
  - Diarrhoea [Unknown]
